FAERS Safety Report 9579352 (Version 2)
Quarter: 2013Q4

REPORT INFORMATION
  Report Type: Spontaneous
  Country: US (occurrence: US)
  Receive Date: 20131001
  Receipt Date: 20131001
  Transmission Date: 20140711
  Serious: No
  Sender: FDA-Public Use
  Company Number: US-AMGEN-USASP2013014615

PATIENT
  Age: 54 Year
  Sex: Male

DRUGS (7)
  1. ENBREL [Suspect]
     Indication: PSORIASIS
     Dosage: 50 MG, QWK
     Dates: start: 20120601
  2. ENBREL [Suspect]
     Indication: PSORIATIC ARTHROPATHY
  3. MTX                                /00113801/ [Concomitant]
     Dosage: 2.5 MG, AT ONCE ON SATURDAY NIGHT
     Route: 048
  4. CLOBEX                             /00337102/ [Concomitant]
     Dosage: 0.05 %, QD
  5. TACROLIMUS [Concomitant]
     Dosage: 0.1 %, BID, AS NEEDED
  6. TACLONEX [Concomitant]
     Dosage: UNK, QHS
     Route: 061
  7. SORIATANE [Concomitant]
     Dosage: UNK, QWK

REACTIONS (4)
  - Psoriatic arthropathy [Unknown]
  - Arthralgia [Unknown]
  - Joint stiffness [Unknown]
  - Psoriasis [Not Recovered/Not Resolved]
